FAERS Safety Report 10272137 (Version 1)
Quarter: 2014Q3

REPORT INFORMATION
  Report Type: Spontaneous
  Country: US (occurrence: US)
  Receive Date: 20140702
  Receipt Date: 20140702
  Transmission Date: 20150326
  Serious: Yes (Other)
  Sender: FDA-Public Use
  Company Number: US-AMGEN-USASP2014048250

PATIENT
  Age: 75 Year
  Sex: Female

DRUGS (5)
  1. LIDODERM [Concomitant]
     Active Substance: LIDOCAINE
  2. COUMADIN [Concomitant]
     Active Substance: WARFARIN SODIUM
  3. VITAMIN D                          /00107901/ [Concomitant]
     Active Substance: ERGOCALCIFEROL
  4. PROLIA [Suspect]
     Active Substance: DENOSUMAB
     Indication: OSTEOPOROSIS POSTMENOPAUSAL
     Dosage: UNK
     Route: 065
  5. NAPROXEN. [Concomitant]
     Active Substance: NAPROXEN

REACTIONS (5)
  - Femur fracture [Recovering/Resolving]
  - Jaw disorder [Unknown]
  - Bone pain [Unknown]
  - Knee arthroplasty [Unknown]
  - Therapeutic response decreased [Unknown]

NARRATIVE: CASE EVENT DATE: 201402
